FAERS Safety Report 5209773-1 (Version None)
Quarter: 2006Q4

REPORT INFORMATION
  Report Type: 
  Country: None (occurrence: None)
  Receive Date: 20061129
  Receipt Date: 20040722
  Transmission Date: 20070319
  Serious: Yes (Other)
  Sender: FDA-Public Use
  Company Number: 2004UW15489

PATIENT
  Age: 52 Year
  Sex: Male

DRUGS (3)
  1. ZESTRIL [Suspect]
     Dosage: 5 MG PO
     Route: 048
  2. VASOTEC [Suspect]
     Dosage: 5 MG
  3. LITHIUM CARBONATE [Suspect]
     Dates: start: 19910101

REACTIONS (10)
  - CHOREA [None]
  - DRUG INTERACTION [None]
  - GAIT DISTURBANCE [None]
  - MEDICATION ERROR [None]
  - MOTOR DYSFUNCTION [None]
  - MUSCULAR WEAKNESS [None]
  - NERVOUS SYSTEM DISORDER [None]
  - PAIN [None]
  - THERAPEUTIC AGENT TOXICITY [None]
  - TREMOR [None]
